FAERS Safety Report 19519074 (Version 1)
Quarter: 2021Q3

REPORT INFORMATION
  Report Type: Spontaneous
  Country: US (occurrence: US)
  Receive Date: 20210709
  Receipt Date: 20210709
  Transmission Date: 20211014
  Serious: No
  Sender: FDA-Public Use
  Company Number: None

PATIENT
  Age: 66 Year
  Sex: Male

DRUGS (1)
  1. GLEEVEC [Suspect]
     Active Substance: IMATINIB MESYLATE
     Route: 048
     Dates: start: 201812

REACTIONS (3)
  - Swelling of eyelid [None]
  - Paraesthesia [None]
  - Rash papular [None]

NARRATIVE: CASE EVENT DATE: 20210707
